FAERS Safety Report 10356236 (Version 1)
Quarter: 2014Q3

REPORT INFORMATION
  Report Type: Spontaneous
  Country: US (occurrence: US)
  Receive Date: 20140801
  Receipt Date: 20140801
  Transmission Date: 20150326
  Serious: Yes (Hospitalization)
  Sender: FDA-Public Use
  Company Number: US-009507513-1407USA011143

PATIENT
  Age: 22 Year
  Sex: Female

DRUGS (2)
  1. CEFOXITIN [Concomitant]
     Active Substance: CEFOXITIN\CEFOXITIN SODIUM
     Dosage: UNK
     Dates: start: 201407, end: 201407
  2. PRIMAXIN IV [Suspect]
     Active Substance: CILASTATIN SODIUM\IMIPENEM
     Indication: POST PROCEDURAL INFECTION
     Dosage: 500 MG,EVERY 6 HOURS
     Route: 042
     Dates: start: 20140718, end: 20140723

REACTIONS (1)
  - Tachycardia [Recovering/Resolving]

NARRATIVE: CASE EVENT DATE: 20140721
